FAERS Safety Report 23271877 (Version 1)
Quarter: 2023Q4

REPORT INFORMATION
  Report Type: Spontaneous
  Country: US (occurrence: US)
  Receive Date: 20231207
  Receipt Date: 20231207
  Transmission Date: 20240109
  Serious: No
  Sender: FDA-Public Use
  Company Number: US-GILEAD-2023-0654049

PATIENT
  Age: 32 Year
  Sex: Male

DRUGS (3)
  1. LENACAPAVIR [Suspect]
     Active Substance: LENACAPAVIR
     Indication: HIV infection
     Dosage: 927 MG
     Route: 058
     Dates: start: 202307
  2. LENACAPAVIR [Suspect]
     Active Substance: LENACAPAVIR
     Indication: HIV infection
     Dosage: 600 MG ON DAY 1 AND DAY 2
     Route: 048
     Dates: start: 202307, end: 202307
  3. TROGARZO [Concomitant]
     Active Substance: IBALIZUMAB-UIYK
     Indication: HIV infection
     Dosage: 800MG INTRAVENOUSLY EVERY 14 DAYS
     Dates: start: 202008

REACTIONS (1)
  - Injection site mass [Unknown]
